FAERS Safety Report 13604318 (Version 1)
Quarter: 2017Q2

REPORT INFORMATION
  Report Type: Spontaneous
  Country: US (occurrence: US)
  Receive Date: 20170601
  Receipt Date: 20170601
  Transmission Date: 20170830
  Serious: Yes (Hospitalization)
  Sender: FDA-Public Use
  Company Number: None

PATIENT
  Age: 86 Year
  Sex: Male
  Weight: 71.3 kg

DRUGS (9)
  1. AMLODIPINE [Concomitant]
     Active Substance: AMLODIPINE BESYLATE
  2. ISORDIL [Concomitant]
     Active Substance: ISOSORBIDE DINITRATE
  3. XARELTO [Concomitant]
     Active Substance: RIVAROXABAN
  4. VELCADE [Suspect]
     Active Substance: BORTEZOMIB
     Indication: AMYLOIDOSIS
     Dosage: ?          OTHER FREQUENCY:WEEKLY;?
     Route: 058
     Dates: start: 20170329, end: 20170510
  5. REVLIMID [Concomitant]
     Active Substance: LENALIDOMIDE
  6. PREDNISONE. [Concomitant]
     Active Substance: PREDNISONE
  7. METOPROLOL. [Concomitant]
     Active Substance: METOPROLOL
  8. PRILOSEC [Concomitant]
     Active Substance: OMEPRAZOLE MAGNESIUM
  9. PRAVASTATIN. [Concomitant]
     Active Substance: PRAVASTATIN

REACTIONS (3)
  - Peripheral swelling [None]
  - Neuropathy peripheral [None]
  - Pain in extremity [None]

NARRATIVE: CASE EVENT DATE: 20170528
